FAERS Safety Report 10956521 (Version 1)
Quarter: 2015Q1

REPORT INFORMATION
  Report Type: Spontaneous
  Country: US (occurrence: US)
  Receive Date: 20150326
  Receipt Date: 20150326
  Transmission Date: 20150721
  Serious: Yes (Death)
  Sender: FDA-Public Use
  Company Number: US-SUN PHARMACEUTICAL INDUSTRIES LTD-2015SUN00781

PATIENT
  Age: 38 Year
  Sex: Female
  Weight: 99 kg

DRUGS (12)
  1. ASENAPINE [Suspect]
     Active Substance: ASENAPINE
     Indication: PRODUCT USED FOR UNKNOWN INDICATION
     Dosage: 10 MG, BID
     Route: 065
  2. ONDANSETRON [Concomitant]
     Active Substance: ONDANSETRON
  3. PRAMIPEXOLE [Concomitant]
     Active Substance: PRAMIPEXOLE
  4. HYDROCODONE [Suspect]
     Active Substance: HYDROCODONE
     Indication: PRODUCT USED FOR UNKNOWN INDICATION
     Route: 065
  5. DULOXETINE [Concomitant]
     Active Substance: DULOXETINE
  6. QUETIAPINE FUMARATE 25MG TABLETS [Suspect]
     Active Substance: QUETIAPINE FUMARATE
     Indication: PRODUCT USED FOR UNKNOWN INDICATION
     Route: 065
  7. GABAPENTIN. [Concomitant]
     Active Substance: GABAPENTIN
  8. NORFLUOXETINE [Suspect]
     Active Substance: NORFLUOXETINE
     Indication: PRODUCT USED FOR UNKNOWN INDICATION
     Route: 065
  9. FLUOXETINE [Suspect]
     Active Substance: FLUOXETINE\FLUOXETINE HYDROCHLORIDE
     Indication: PRODUCT USED FOR UNKNOWN INDICATION
     Route: 065
  10. ETHANOL [Suspect]
     Active Substance: ALCOHOL
     Indication: PRODUCT USED FOR UNKNOWN INDICATION
     Route: 065
  11. CLONIDINE. [Concomitant]
     Active Substance: CLONIDINE
  12. RISPERIDONE. [Concomitant]
     Active Substance: RISPERIDONE

REACTIONS (2)
  - Toxicity to various agents [Fatal]
  - Visceral congestion [None]
